FAERS Safety Report 6884036-7 (Version None)
Quarter: 2010Q3

REPORT INFORMATION
  Report Type: 
  Country: None (occurrence: None)
  Receive Date: 20100729
  Receipt Date: 20100716
  Transmission Date: 20110219
  Serious: Yes (Hospitalization, Other)
  Sender: FDA-Public Use
  Company Number: PHHY2010JP47573

PATIENT
  Sex: Male

DRUGS (14)
  1. AFINITOR [Suspect]
     Indication: METASTATIC RENAL CELL CARCINOMA
     Dosage: 10 MG DAILY
     Route: 048
     Dates: start: 20100521, end: 20100615
  2. AFINITOR [Suspect]
     Dosage: 10 MG DAILY
     Route: 048
     Dates: start: 20100619
  3. SUNITINIB MALATE [Concomitant]
     Indication: METASTATIC RENAL CELL CARCINOMA
     Dosage: 50 MG
     Route: 048
     Dates: start: 20090918, end: 20100414
  4. RAIPECK [Concomitant]
     Dosage: 200 MG
     Route: 048
  5. CALONAL [Concomitant]
     Dosage: 1200 MG
     Route: 048
  6. LASIX [Concomitant]
     Dosage: 40 MG
     Route: 048
  7. DECADRON [Concomitant]
     Dosage: 2 MG
     Route: 048
  8. STANZOME OD [Concomitant]
     Dosage: 15 MG
     Route: 048
  9. GASLON [Concomitant]
     Dosage: 120 MG
     Route: 048
  10. LENDORMIN [Concomitant]
     Dosage: 0.25 MG
     Route: 048
  11. MIYA-BM [Concomitant]
     Dosage: 3 G
     Route: 048
  12. LIVACT [Concomitant]
     Dosage: 12.45 G
     Route: 048
  13. DUROTEP JANSSEN [Concomitant]
     Dosage: 1.47 MG
     Route: 048
  14. HEAVY KAMA G [Concomitant]
     Dosage: 2 G
     Route: 048

REACTIONS (4)
  - ALANINE AMINOTRANSFERASE INCREASED [None]
  - ASPARTATE AMINOTRANSFERASE INCREASED [None]
  - GAMMA-GLUTAMYLTRANSFERASE INCREASED [None]
  - PLATELET COUNT DECREASED [None]
